FAERS Safety Report 17292805 (Version 1)
Quarter: 2020Q1

REPORT INFORMATION
  Report Type: Spontaneous
  Country: US (occurrence: US)
  Receive Date: 20200102
  Receipt Date: 20200102
  Transmission Date: 20200409
  Serious: Yes (Hospitalization)
  Sender: FDA-Public Use
  Company Number: None

PATIENT
  Sex: Male
  Weight: 79.3 kg

DRUGS (5)
  1. PEGFILGRASTIM [Suspect]
     Active Substance: PEGFILGRASTIM
     Dates: end: 20191216
  2. CARBOPLATIN (241240) [Suspect]
     Active Substance: CARBOPLATIN
     Dates: end: 20191214
  3. IFOSFAMIDE. [Suspect]
     Active Substance: IFOSFAMIDE
     Dates: end: 20191103
  4. ETOPOSIDE (VP-16) [Suspect]
     Active Substance: ETOPOSIDE
     Dates: end: 20191214
  5. PACLITAXEL. [Suspect]
     Active Substance: PACLITAXEL
     Dates: end: 20191101

REACTIONS (5)
  - Platelet count decreased [None]
  - Malignant neoplasm progression [None]
  - Pyrexia [None]
  - Neutropenia [None]
  - Testicular germ cell cancer [None]

NARRATIVE: CASE EVENT DATE: 20191223
